FAERS Safety Report 4645016-5 (Version None)
Quarter: 2005Q2

REPORT INFORMATION
  Report Type: 
  Country: None (occurrence: None)
  Receive Date: 20050426
  Receipt Date: 20050121
  Transmission Date: 20051028
  Serious: Yes (Hospitalization, Disabling)
  Sender: FDA-Public Use
  Company Number: US-ROCHE-393380

PATIENT
  Age: 14 Year
  Sex: Female
  Weight: 54.4 kg

DRUGS (1)
  1. ACCUTANE [Suspect]
     Indication: ACNE
     Route: 048
     Dates: start: 19970110, end: 19970615

REACTIONS (12)
  - ASPARTATE AMINOTRANSFERASE INCREASED [None]
  - BACTERIA URINE [None]
  - CREATININE URINE INCREASED [None]
  - GLOMERULOSCLEROSIS [None]
  - INTERNAL INJURY [None]
  - MULTI-ORGAN DISORDER [None]
  - PROTEINURIA [None]
  - RASH PAPULAR [None]
  - RASH PUSTULAR [None]
  - RENAL DISORDER [None]
  - URINARY TRACT INFECTION [None]
  - URINE KETONE BODY PRESENT [None]
